FAERS Safety Report 8051477-4 (Version None)
Quarter: 2012Q1

REPORT INFORMATION
  Report Type: 
  Country: None (occurrence: None)
  Receive Date: 20120117
  Receipt Date: 20120108
  Transmission Date: 20120608
  Serious: Yes (Hospitalization)
  Sender: FDA-Public Use
  Company Number: US-AMGEN-USASP2011052419

PATIENT
  Age: 64 Year
  Sex: Female

DRUGS (5)
  1. ENBREL [Suspect]
     Indication: RHEUMATOID ARTHRITIS
     Dosage: 25 MG, 2 TIMES/WK
     Dates: end: 20111201
  2. METHOTREXATE [Concomitant]
     Dosage: 4 MG, QWK
     Dates: start: 20110728
  3. REMICADE [Concomitant]
     Dosage: UNK
  4. METHOTREXATE [Concomitant]
     Dosage: 2.5 MG, BID
  5. ENBREL [Suspect]
     Dosage: 25 MG, 2 TIMES/WK
     Dates: start: 19970101, end: 20040101

REACTIONS (27)
  - GAIT DISTURBANCE [None]
  - ONYCHOCLASIS [None]
  - SCIATICA [None]
  - SKIN ULCER [None]
  - ABDOMINAL DISTENSION [None]
  - INJECTION SITE PRURITUS [None]
  - HYPERGLYCAEMIA [None]
  - ONYCHALGIA [None]
  - POLLAKIURIA [None]
  - INJECTION SITE ERYTHEMA [None]
  - BLOOD PRESSURE INCREASED [None]
  - BONE DISORDER [None]
  - RHEUMATOID ARTHRITIS [None]
  - COUGH [None]
  - RHINORRHOEA [None]
  - BUNION [None]
  - DRUG INEFFECTIVE [None]
  - DIARRHOEA [None]
  - DEHYDRATION [None]
  - FOOT DEFORMITY [None]
  - ALOPECIA [None]
  - OROPHARYNGEAL PAIN [None]
  - INFLAMMATION [None]
  - PRURITUS [None]
  - THROAT IRRITATION [None]
  - NODULE [None]
  - MOUTH CYST [None]
